FAERS Safety Report 6104263-6 (Version None)
Quarter: 2009Q1

REPORT INFORMATION
  Report Type: 
  Country: None (occurrence: None)
  Receive Date: 20090302
  Receipt Date: 20090223
  Transmission Date: 20090719
  Serious: Yes (Hospitalization)
  Sender: FDA-Public Use
  Company Number: 2008SP013848

PATIENT
  Age: 52 Year
  Sex: Female
  Weight: 60.4 kg

DRUGS (4)
  1. TEMOZOLOMIDE [Suspect]
     Indication: GLIOBLASTOMA
     Dosage: 170 MG; PO;
     Route: 048
     Dates: start: 20080211, end: 20080325
  2. TEMOZOLOMIDE [Suspect]
     Indication: GLIOBLASTOMA
     Dosage: 170 MG; PO;
     Route: 048
     Dates: start: 20080424, end: 20080611
  3. DEXAMETHASON /00016001/ (CON.) [Concomitant]
  4. LEVOMEPROMAZINE /00038601/ (CON.) [Concomitant]

REACTIONS (4)
  - ANAEMIA [None]
  - EPISTAXIS [None]
  - THROMBOCYTOPENIA [None]
  - WHITE BLOOD CELL COUNT DECREASED [None]
